FAERS Safety Report 25411832 (Version 1)
Quarter: 2025Q2

REPORT INFORMATION
  Report Type: Spontaneous
  Country: SK (occurrence: SK)
  Receive Date: 20250609
  Receipt Date: 20250609
  Transmission Date: 20250716
  Serious: Yes (Hospitalization, Other)
  Sender: STRIDES
  Company Number: SK-STRIDES ARCOLAB LIMITED-2025SP006940

PATIENT
  Age: 54 Year
  Sex: Female

DRUGS (2)
  1. TACROLIMUS [Interacting]
     Active Substance: TACROLIMUS
     Indication: Immunosuppressant drug therapy
     Route: 065
  2. PAXLOVID [Interacting]
     Active Substance: NIRMATRELVIR\RITONAVIR
     Indication: COVID-19
     Route: 065
     Dates: start: 202209

REACTIONS (5)
  - Diabetic ketoacidosis [Unknown]
  - Metabolic acidosis [Unknown]
  - Diabetic metabolic decompensation [Unknown]
  - Drug interaction [Unknown]
  - Immunosuppressant drug level increased [Unknown]
